FAERS Safety Report 22535984 (Version 3)
Quarter: 2024Q2

REPORT INFORMATION
  Report Type: Spontaneous
  Country: US (occurrence: US)
  Receive Date: 20230608
  Receipt Date: 20240607
  Transmission Date: 20240716
  Serious: No
  Sender: FDA-Public Use
  Company Number: US-002147023-NVSC2023US130970

PATIENT
  Sex: Female

DRUGS (1)
  1. MEKINIST [Suspect]
     Active Substance: TRAMETINIB DIMETHYL SULFOXIDE
     Indication: Cerebrovascular arteriovenous malformation
     Dosage: 2 MG, QD
     Route: 048
     Dates: start: 202305

REACTIONS (3)
  - Dermatitis acneiform [Unknown]
  - Alopecia [Unknown]
  - Product use in unapproved indication [Unknown]
